FAERS Safety Report 15567351 (Version 2)
Quarter: 2020Q3

REPORT INFORMATION
  Report Type: Report from Study
  Country: CA (occurrence: CA)
  Receive Date: 20181030
  Receipt Date: 20181031
  Transmission Date: 20201105
  Serious: Yes (Other)
  Sender: FDA-Public Use
  Company Number: CA-ASTRAZENECA-2018SF41311

PATIENT
  Age: 58 Year
  Sex: Female

DRUGS (2)
  1. DURVALUMAB. [Suspect]
     Active Substance: DURVALUMAB
     Indication: NEOPLASM MALIGNANT
     Route: 042
     Dates: start: 20180827, end: 20180927
  2. TREMELIMUMAB. [Suspect]
     Active Substance: TREMELIMUMAB
     Indication: NEOPLASM MALIGNANT
     Route: 042
     Dates: start: 20180827, end: 20180927

REACTIONS (1)
  - Colitis [Unknown]

NARRATIVE: CASE EVENT DATE: 20181020
